FAERS Safety Report 7620080-X (Version None)
Quarter: 2011Q3

REPORT INFORMATION
  Report Type: 
  Country: None (occurrence: None)
  Receive Date: 20110719
  Receipt Date: 20110714
  Transmission Date: 20111222
  Serious: Yes (Other)
  Sender: FDA-Public Use
  Company Number: US-SANOFI-AVENTIS-2011SA015910

PATIENT
  Age: 47 Year
  Sex: Female
  Weight: 77 kg

DRUGS (5)
  1. LOVENOX [Suspect]
     Indication: PULMONARY EMBOLISM
     Route: 051
     Dates: start: 20110110, end: 20110314
  2. HYDROCODONE [Concomitant]
     Indication: FACIAL PAIN
     Dates: start: 20050101
  3. LOVENOX [Suspect]
     Indication: HYPERCOAGULATION
     Route: 051
     Dates: start: 20110110, end: 20110314
  4. HEPARIN [Concomitant]
  5. LEXAPRO [Concomitant]
     Dates: start: 20050101

REACTIONS (31)
  - WHITE BLOOD CELL COUNT DECREASED [None]
  - URTICARIA [None]
  - MUSCLE TWITCHING [None]
  - ASPARTATE AMINOTRANSFERASE INCREASED [None]
  - RASH GENERALISED [None]
  - TRANSAMINASES INCREASED [None]
  - BLOOD CHLORIDE DECREASED [None]
  - ANGIOEDEMA [None]
  - FATIGUE [None]
  - HAEMOGLOBIN DECREASED [None]
  - BLOOD SODIUM DECREASED [None]
  - BLOOD ALBUMIN DECREASED [None]
  - SWELLING [None]
  - ALANINE AMINOTRANSFERASE INCREASED [None]
  - RED BLOOD CELL COUNT DECREASED [None]
  - HYPERHIDROSIS [None]
  - RENAL IMPAIRMENT [None]
  - LIVER FUNCTION TEST ABNORMAL [None]
  - INTERNATIONAL NORMALISED RATIO DECREASED [None]
  - STEVENS-JOHNSON SYNDROME [None]
  - ASTHENIA [None]
  - INJECTION SITE PAIN [None]
  - HAEMATOCRIT DECREASED [None]
  - BLOOD CREATININE DECREASED [None]
  - LYMPHADENOPATHY [None]
  - RASH PAPULAR [None]
  - ANXIETY [None]
  - MUSCLE SPASMS [None]
  - PRODUCT QUALITY ISSUE [None]
  - PROTEIN TOTAL DECREASED [None]
  - RASH PRURITIC [None]
